FAERS Safety Report 6507555-1 (Version None)
Quarter: 2009Q4

REPORT INFORMATION
  Report Type: 
  Country: None (occurrence: None)
  Receive Date: 20091221
  Receipt Date: 20091211
  Transmission Date: 20100525
  Serious: Yes (Other)
  Sender: FDA-Public Use
  Company Number: GXKR2009GB13387

PATIENT
  Age: 55 Year
  Sex: Male

DRUGS (13)
  1. SOMATROPIN (NGX) [Suspect]
     Indication: HYPOPITUITARISM
     Dosage: 10 MG, QW
     Route: 065
  2. TESTOSTERONE [Suspect]
     Dosage: UNK
     Route: 065
     Dates: start: 20071001
  3. ATORVASTATIN CALCIUM [Concomitant]
     Dosage: 80 MG, UNK
     Route: 065
  4. CLOPIDOGREL SULFATE [Concomitant]
     Dosage: 75 MG, UNK
     Route: 065
  5. FENOFIBRATE [Concomitant]
     Dosage: 160 MG, UNK
     Route: 065
  6. METFORMIN HYDROCHLORIDE [Concomitant]
     Dosage: 3000 MG, UNK
     Route: 065
  7. MOVELAT [Concomitant]
     Route: 065
  8. NOVOMIX [Concomitant]
     Dosage: 136 IU, UNK
     Route: 065
  9. ROSIGLITAZONE MALEATE [Concomitant]
     Dosage: 4 MG, UNK
     Route: 065
  10. ALBUTEROL [Concomitant]
     Dosage: 800 UG, UNK
  11. FLUTICASONE PROPIONATE W/SALMETEROL XINAFOATE [Concomitant]
  12. VALSARTAN [Concomitant]
     Dosage: 80 MG, UNK
     Route: 065
  13. VARDENAFIL [Concomitant]
     Dosage: 20 MG, BIW
     Route: 065

REACTIONS (4)
  - BLOOD PRESSURE INCREASED [None]
  - BURNING SENSATION [None]
  - DYSGEUSIA [None]
  - HYPERHIDROSIS [None]
